FAERS Safety Report 18147730 (Version 1)
Quarter: 2020Q3

REPORT INFORMATION
  Report Type: Spontaneous
  Country: CN (occurrence: CN)
  Receive Date: 20200814
  Receipt Date: 20200814
  Transmission Date: 20201103
  Serious: Yes (Hospitalization, Other)
  Sender: FDA-Public Use
  Company Number: CN-SCIEGEN-2020SCILIT00185

PATIENT
  Age: 72 Year
  Sex: Female

DRUGS (5)
  1. METFORMIN HYDROCHLORIDETABLETS [Suspect]
     Active Substance: METFORMIN HYDROCHLORIDE
     Indication: TYPE 2 DIABETES MELLITUS
     Route: 048
  2. NORMAL SALINE [Interacting]
     Active Substance: SODIUM CHLORIDE
     Indication: PRODUCT USED FOR UNKNOWN INDICATION
     Dosage: 1000 ML
     Route: 065
  3. DOBUTAMINE [Interacting]
     Active Substance: DOBUTAMINE HYDROCHLORIDE
     Indication: ELECTROCARDIOGRAM QRS COMPLEX PROLONGED
     Dosage: 1.0 MICRO GM/KG/MIN
     Route: 065
  4. SODIUM BICARBONATE. [Interacting]
     Active Substance: SODIUM BICARBONATE
     Indication: LACTIC ACIDOSIS
     Dosage: 250 ML
     Route: 065
  5. NOREPINEPHRINE. [Interacting]
     Active Substance: NOREPINEPHRINE
     Indication: HYPOTENSION
     Dosage: 2.5MG/KG/MIN
     Route: 065

REACTIONS (3)
  - Arrhythmia [Recovered/Resolved]
  - Lactic acidosis [Recovered/Resolved]
  - Circulatory collapse [Recovered/Resolved]
